FAERS Safety Report 11111252 (Version 1)
Quarter: 2015Q2

REPORT INFORMATION
  Report Type: Other
  Country: GB (occurrence: GB)
  Receive Date: 20150513
  Receipt Date: 20150513
  Transmission Date: 20150821
  Serious: Yes (Disabling)
  Sender: FDA-Public Use
  Company Number: GB-MYLANLABS-2015M1014567

PATIENT

DRUGS (11)
  1. HYPROMELLOSE [Concomitant]
     Active Substance: HYPROMELLOSES
     Dosage: 1 DF, QID (AS DIRECTED)
     Dates: start: 20150223
  2. SOLIFENACIN [Concomitant]
     Active Substance: SOLIFENACIN
     Dosage: 1 DF, QD
     Dates: start: 20131121
  3. WHITE SOFT PARAFFIN [Concomitant]
     Dosage: UNK (BEWARE OF NAKED FLAMES)
     Dates: start: 20090528
  4. IBUPROFEN. [Suspect]
     Active Substance: IBUPROFEN
     Dosage: UNK
     Dates: start: 20120720
  5. ESTRIOL [Concomitant]
     Active Substance: ESTRIOL
     Dosage: UNK (APPLY AT NIGHT)
     Dates: start: 20150409
  6. PARACETAMOL [Concomitant]
     Active Substance: ACETAMINOPHEN
     Dosage: 2 DF, QID (MAX 8/24)
     Route: 048
     Dates: start: 20110704
  7. SIMVASTATIN. [Concomitant]
     Active Substance: SIMVASTATIN
     Dosage: 1 DF, QD (AT NIGHT)
     Dates: start: 20121012
  8. TRAMADOL [Concomitant]
     Active Substance: TRAMADOL
     Dosage: UNK (1-2 TO BE TAKEN FOUR TIMES DAILY WHEN REQUIRED)
     Dates: start: 20140307
  9. ASPIRIN                            /00002701/ [Concomitant]
     Active Substance: ASPIRIN
     Dosage: 1 DF, QD
     Dates: start: 20140811
  10. BENDROFLUMETHIAZIDE [Concomitant]
     Active Substance: BENDROFLUMETHIAZIDE
     Dosage: 1 DF, QD
     Route: 048
     Dates: start: 20120309
  11. LANSOPRAZOLE. [Concomitant]
     Active Substance: LANSOPRAZOLE
     Dosage: 1 DF, QD
     Dates: start: 20140811

REACTIONS (3)
  - Rash [Recovered/Resolved]
  - Oedema peripheral [Recovered/Resolved]
  - Gingivitis [Recovered/Resolved]

NARRATIVE: CASE EVENT DATE: 20150421
